FAERS Safety Report 11597180 (Version 6)
Quarter: 2016Q1

REPORT INFORMATION
  Report Type: Spontaneous
  Country: US (occurrence: US)
  Receive Date: 20151006
  Receipt Date: 20160124
  Transmission Date: 20160525
  Serious: Yes (Other)
  Sender: FDA-Public Use
  Company Number: US-009507513-1510USA002625

PATIENT
  Sex: Female
  Weight: 2.7 kg

DRUGS (3)
  1. TAZOBACTAM [Concomitant]
     Active Substance: TAZOBACTAM
     Indication: STAPHYLOCOCCAL INFECTION
     Dosage: UNK
     Route: 064
  2. PIPERACILLIN [Concomitant]
     Active Substance: PIPERACILLIN
     Indication: STAPHYLOCOCCAL INFECTION
     Route: 064
  3. CUBICIN [Suspect]
     Active Substance: DAPTOMYCIN
     Dosage: UNK
     Route: 064

REACTIONS (3)
  - Foetal exposure during pregnancy [Recovered/Resolved]
  - Low birth weight baby [Unknown]
  - Premature baby [Unknown]
